FAERS Safety Report 5535605-8 (Version None)
Quarter: 2007Q4

REPORT INFORMATION
  Report Type: 
  Country: None (occurrence: None)
  Receive Date: 20071206
  Receipt Date: 20061218
  Transmission Date: 20080405
  Serious: Yes (Hospitalization)
  Sender: FDA-Public Use
  Company Number: US-AMGEN-US201561

PATIENT
  Sex: Female
  Weight: 65 kg

DRUGS (7)
  1. ENBREL [Suspect]
     Indication: RHEUMATOID ARTHRITIS
     Route: 058
     Dates: start: 20030901, end: 20061025
  2. METHOTREXATE [Concomitant]
     Route: 065
     Dates: start: 20021001
  3. PREDNISONE TAB [Concomitant]
     Route: 065
     Dates: start: 20021001
  4. VICODIN [Concomitant]
     Route: 065
     Dates: start: 20021001
  5. IBUPROFEN [Concomitant]
     Route: 065
     Dates: start: 20060101
  6. ATENOLOL [Concomitant]
     Route: 065
     Dates: start: 20060801
  7. CENTRUM [Concomitant]
     Route: 065
     Dates: start: 20021001

REACTIONS (8)
  - ARTERIOSCLEROSIS CORONARY ARTERY [None]
  - CAROTID ARTERY DISEASE [None]
  - DIVERTICULITIS [None]
  - ESSENTIAL HYPERTENSION [None]
  - HYPERLIPIDAEMIA [None]
  - KLEBSIELLA INFECTION [None]
  - RECTAL HAEMORRHAGE [None]
  - URINARY TRACT INFECTION [None]
